FAERS Safety Report 8943792 (Version 1)
Quarter: 2012Q4

REPORT INFORMATION
  Report Type: 
  Country: IT (occurrence: IT)
  Receive Date: 20121203
  Receipt Date: 20121203
  Transmission Date: 20130627
  Serious: Yes (Hospitalization)
  Sender: FDA-Public Use
  Company Number: IT-GLAXOSMITHKLINE-B0849008A

PATIENT
  Age: 11 Year
  Sex: Male

DRUGS (1)
  1. SERETIDE [Suspect]
     Route: 055

REACTIONS (5)
  - Overdose [Recovered/Resolved]
  - Sinus tachycardia [Unknown]
  - Electrocardiogram QT interval abnormal [Unknown]
  - Bundle branch block right [Unknown]
  - Hypokalaemia [Unknown]
